FAERS Safety Report 20899733 (Version 2)
Quarter: 2022Q2

REPORT INFORMATION
  Report Type: Report from Study
  Country: BR (occurrence: BR)
  Receive Date: 20220601
  Receipt Date: 20220602
  Transmission Date: 20220721
  Serious: Yes (Hospitalization, Other)
  Sender: FDA-Public Use
  Company Number: BR-ABBVIE-22K-020-4376332-00

PATIENT
  Age: 68 Year
  Sex: Female
  Weight: 74 kg

DRUGS (1)
  1. RINVOQ [Suspect]
     Active Substance: UPADACITINIB
     Indication: Rheumatoid arthritis
     Route: 048
     Dates: start: 20210917

REACTIONS (6)
  - Venous thrombosis [Recovered/Resolved]
  - Infarction [Recovered/Resolved]
  - Venous perforation [Recovered/Resolved]
  - Cardiac tamponade [Recovered/Resolved]
  - Tachycardia [Recovered/Resolved]
  - Cerebrovascular accident [Recovering/Resolving]

NARRATIVE: CASE EVENT DATE: 20220422
